FAERS Safety Report 5642063-1 (Version None)
Quarter: 2008Q1

REPORT INFORMATION
  Report Type: 
  Country: None (occurrence: None)
  Receive Date: 20080131
  Receipt Date: 20071102
  Transmission Date: 20080703
  Serious: No
  Sender: FDA-Public Use
  Company Number: 163-21880-07110186

PATIENT
  Age: 50 Year
  Sex: Male

DRUGS (2)
  1. REVLIMID [Suspect]
     Indication: MULTIPLE MYELOMA
     Dosage: 12.5, 25  MG, 1 IN 2 D, ORAL
     Route: 048
     Dates: start: 20070913, end: 20071001
  2. REVLIMID [Suspect]
     Indication: MULTIPLE MYELOMA
     Dosage: 12.5, 25  MG, 1 IN 2 D, ORAL
     Route: 048
     Dates: start: 20071031

REACTIONS (2)
  - DEPRESSION [None]
  - FATIGUE [None]
